FAERS Safety Report 5765430-4 (Version None)
Quarter: 2008Q2

REPORT INFORMATION
  Report Type: 
  Country: None (occurrence: None)
  Receive Date: 20080611
  Receipt Date: 20080520
  Transmission Date: 20081010
  Serious: Yes (Other)
  Sender: FDA-Public Use
  Company Number: US-ABBOTT-08P-163-0455755-00

PATIENT
  Age: 25 Year
  Sex: Male

DRUGS (1)
  1. TRICOR [Suspect]
     Indication: FAMILIAL HYPERTRIGLYCERIDAEMIA
     Dosage: 180 MG DAILY

REACTIONS (5)
  - DIARRHOEA [None]
  - GASTRIC DISORDER [None]
  - MUSCULAR WEAKNESS [None]
  - MYALGIA [None]
  - THROMBOSIS [None]
